FAERS Safety Report 7457072-X (Version None)
Quarter: 2011Q1

REPORT INFORMATION
  Report Type: 
  Country: None (occurrence: None)
  Receive Date: 20110302
  Receipt Date: 20101214
  Transmission Date: 20110831
  Serious: No
  Sender: FDA-Public Use
  Company Number: 023817

PATIENT
  Sex: Female
  Weight: 102 kg

DRUGS (10)
  1. HYDROCODONE [Concomitant]
  2. LEVOTHYROXINE SODIUM [Concomitant]
  3. HYDROCHLOROTHIAZIDE [Concomitant]
  4. METHOTREXATE [Concomitant]
  5. LISINOPRIL [Concomitant]
  6. CIMZIA [Suspect]
     Indication: RHEUMATOID ARTHRITIS
     Dosage: (400 MG EVERY MONTH SUBCUTANEOUS)
     Route: 058
     Dates: start: 20101116
  7. IBUPROFEN [Concomitant]
  8. OMEPRAZOLE [Concomitant]
  9. PREDNISONE TAB [Concomitant]
  10. METFORMIN HCL [Concomitant]

REACTIONS (1)
  - BRONCHITIS [None]
